FAERS Safety Report 14878334 (Version 1)
Quarter: 2018Q2

REPORT INFORMATION
  Report Type: Spontaneous
  Country: US (occurrence: US)
  Receive Date: 20180511
  Receipt Date: 20180511
  Transmission Date: 20180711
  Serious: No
  Sender: FDA-Public Use
  Company Number: US-BAUSCH-BL-2017-017154

PATIENT
  Age: 82 Year
  Sex: Female

DRUGS (6)
  1. DORZOLAMIDE [Concomitant]
     Active Substance: DORZOLAMIDE
     Indication: GLAUCOMA
     Route: 047
  2. LATANOPROST OPHTHALMIC SOLUTION 0.005% [Suspect]
     Active Substance: LATANOPROST
     Indication: GLAUCOMA
     Route: 047
  3. SPIRONOLACTONE. [Concomitant]
     Active Substance: SPIRONOLACTONE
     Indication: DIURETIC THERAPY
     Route: 048
  4. PRESERVISION AREDS 2 FORMULA SOFT GELS [Suspect]
     Active Substance: MINERALS\VITAMINS
     Indication: MACULAR DEGENERATION
     Route: 048
     Dates: start: 2014
  5. SYNTHROID [Concomitant]
     Active Substance: LEVOTHYROXINE SODIUM
     Indication: HYPOTHYROIDISM
     Route: 048
  6. ZETIA [Concomitant]
     Active Substance: EZETIMIBE
     Indication: BLOOD CHOLESTEROL INCREASED
     Route: 048

REACTIONS (3)
  - Skin discolouration [Recovered/Resolved]
  - Injection site extravasation [Recovered/Resolved]
  - Injection site bruising [Recovered/Resolved]

NARRATIVE: CASE EVENT DATE: 20170515
